FAERS Safety Report 24056037 (Version 1)
Quarter: 2024Q3

REPORT INFORMATION
  Report Type: Spontaneous
  Country: SI (occurrence: SI)
  Receive Date: 20240705
  Receipt Date: 20240705
  Transmission Date: 20241017
  Serious: Yes (Life-Threatening, Hospitalization, Other)
  Sender: OTSUKA
  Company Number: SI-GLENMARK PHARMACEUTICALS-2024GMK090444

PATIENT
  Age: 60 Year
  Sex: Female

DRUGS (15)
  1. ARIPIPRAZOLE [Suspect]
     Active Substance: ARIPIPRAZOLE
     Indication: Product used for unknown indication
     Dosage: 5 MG, QD
     Route: 065
  2. ARIPIPRAZOLE [Suspect]
     Active Substance: ARIPIPRAZOLE
     Dosage: 10 MG, QD
     Route: 065
     Dates: start: 202210, end: 202212
  3. BREXPIPRAZOLE [Suspect]
     Active Substance: BREXPIPRAZOLE
     Indication: Product used for unknown indication
     Dosage: 1 MG
     Route: 065
     Dates: start: 202210, end: 202212
  4. OLANZAPINE [Suspect]
     Active Substance: OLANZAPINE
     Indication: Acute psychosis
     Dosage: 5 MG
     Route: 065
     Dates: start: 202210, end: 202212
  5. OLANZAPINE [Suspect]
     Active Substance: OLANZAPINE
     Dosage: 20 MG, QD
     Route: 065
     Dates: start: 202301, end: 202303
  6. BIPERIDEN [Suspect]
     Active Substance: BIPERIDEN
     Indication: Bradykinesia
     Dosage: 4 MG, QD
     Route: 065
     Dates: start: 202210, end: 202210
  7. BIPERIDEN [Suspect]
     Active Substance: BIPERIDEN
     Indication: Muscle rigidity
     Dosage: 6 MG, QD
     Route: 065
     Dates: start: 202210, end: 202212
  8. BIPERIDEN [Suspect]
     Active Substance: BIPERIDEN
     Indication: Reduced facial expression
  9. RISPERIDONE [Suspect]
     Active Substance: RISPERIDONE
     Indication: Persecutory delusion
     Dosage: 1 MG, QD
     Route: 065
  10. RISPERIDONE [Suspect]
     Active Substance: RISPERIDONE
     Indication: Hallucination, auditory
     Dosage: 2 MG, QD
     Route: 065
     Dates: start: 201903, end: 202207
  11. RISPERIDONE [Suspect]
     Active Substance: RISPERIDONE
     Dosage: 9 MG, QD (DIVIDED INTO TWO DOSES)
     Route: 065
     Dates: start: 202207, end: 202210
  12. RISPERIDONE [Suspect]
     Active Substance: RISPERIDONE
     Dosage: 6 MG, QD
     Route: 065
     Dates: start: 202210, end: 202210
  13. RISPERIDONE [Suspect]
     Active Substance: RISPERIDONE
     Dosage: 2 MG, QD (DIVIDED INTO TWO DOSES)
     Route: 065
     Dates: start: 202210, end: 202210
  14. FLUPHENAZINE [Suspect]
     Active Substance: FLUPHENAZINE
     Indication: Product used for unknown indication
     Dosage: 10 MG, QD (DIVIDED INTO TWO DOSES)
     Route: 065
     Dates: start: 202207, end: 202210
  15. FLUPHENAZINE [Suspect]
     Active Substance: FLUPHENAZINE
     Dosage: UNK (DOSE REDUCED)
     Route: 065
     Dates: start: 202210, end: 202210

REACTIONS (3)
  - Neuroleptic malignant syndrome [Recovering/Resolving]
  - Pneumonia [Recovering/Resolving]
  - Akathisia [Recovered/Resolved]

NARRATIVE: CASE EVENT DATE: 20221001
